FAERS Safety Report 4423350-1 (Version None)
Quarter: 2004Q3

REPORT INFORMATION
  Report Type: 
  Country: None (occurrence: None)
  Receive Date: 20040806
  Receipt Date: 20040805
  Transmission Date: 20050211
  Serious: Yes (Death, Life-Threatening, Hospitalization, Disabling, Other)
  Sender: FDA-Public Use
  Company Number: 04-03-0311

PATIENT
  Age: 60 Year
  Sex: Female
  Weight: 49.8957 kg

DRUGS (4)
  1. CLOZAPINE [Suspect]
     Indication: SCHIZOPHRENIA, DISORGANISED TYPE
     Dosage: 700-750MG QD ORAL
     Route: 048
     Dates: start: 20000901
  2. ZYPREXA [Concomitant]
  3. ZOLOFT [Concomitant]
  4. KLONOPIN [Concomitant]

REACTIONS (2)
  - LUNG CANCER METASTATIC [None]
  - LUNG SQUAMOUS CELL CARCINOMA STAGE UNSPECIFIED [None]
